FAERS Safety Report 21589845 (Version 1)
Quarter: 2022Q4

REPORT INFORMATION
  Report Type: Spontaneous
  Country: CA (occurrence: CA)
  Receive Date: 20221114
  Receipt Date: 20221114
  Transmission Date: 20230112
  Serious: Yes (Other)
  Sender: FDA-Public Use
  Company Number: None

PATIENT
  Sex: Female

DRUGS (3)
  1. ATORVASTATIN [Suspect]
     Active Substance: ATORVASTATIN
     Indication: Type 2 diabetes mellitus
     Dosage: 1 EVERY 1 DAYS
  2. TOZINAMERAN [Suspect]
     Active Substance: TOZINAMERAN
     Indication: Product used for unknown indication
     Route: 030
  3. PREDNISONE [Concomitant]
     Active Substance: PREDNISONE

REACTIONS (4)
  - Immune-mediated myositis [Recovered/Resolved]
  - Nasopharyngitis [Recovered/Resolved]
  - Pyrexia [Recovered/Resolved]
  - Sinusitis [Recovered/Resolved]
